FAERS Safety Report 4910689-6 (Version None)
Quarter: 2006Q1

REPORT INFORMATION
  Report Type: 
  Country: None (occurrence: None)
  Receive Date: 20060214
  Receipt Date: 20060202
  Transmission Date: 20060701
  Serious: Yes (Death)
  Sender: FDA-Public Use
  Company Number: IT-NOVOPROD-250553

PATIENT
  Age: 44 Year
  Sex: Female
  Weight: 45 kg

DRUGS (2)
  1. NOVOSEVEN [Suspect]
     Indication: SHOCK HAEMORRHAGIC
     Dosage: 2.4 MG, (53 MICROGRAM/KG)
     Route: 042
  2. NOVOSEVEN [Suspect]
     Dosage: 2.4 MG, (53 MICROGRAM/KG)

REACTIONS (2)
  - CONCOMITANT DISEASE PROGRESSION [None]
  - HAEMORRHAGE [None]
